FAERS Safety Report 6104365-4 (Version None)
Quarter: 2009Q1

REPORT INFORMATION
  Report Type: 
  Country: None (occurrence: None)
  Receive Date: 20090305
  Receipt Date: 20090227
  Transmission Date: 20090719
  Serious: Yes (Life-Threatening, Other)
  Sender: FDA-Public Use
  Company Number: AU-ELI_LILLY_AND_COMPANY-AU200901005370

PATIENT
  Sex: Female

DRUGS (10)
  1. CYMBALTA [Suspect]
     Indication: DEPRESSION
     Dosage: 60 MG, UNKNOWN
     Route: 065
     Dates: start: 20081210, end: 20081211
  2. CYMBALTA [Suspect]
     Dosage: 30 MG, DAILY (1/D)
     Route: 065
     Dates: start: 20081201
  3. CYMBALTA [Suspect]
     Dosage: 60 MG, DAILY (1/D)
     Route: 065
  4. TEGRETOL [Concomitant]
     Dosage: UNK, UNKNOWN
     Route: 065
     Dates: start: 20040101
  5. TEGRETOL [Concomitant]
     Dosage: HALF OF PREVIOUS DOSE, UNKNOWN
     Route: 065
  6. VALIUM [Concomitant]
     Dosage: 5 MG, 2/D
     Route: 065
  7. METFORMIN [Concomitant]
     Indication: POLYCYSTIC OVARIES
     Dosage: 500 MG, DAILY (1/D)
     Route: 065
  8. ZUMENON [Concomitant]
     Dosage: 2 MG, UNKNOWN
     Route: 065
  9. PLAQUENIL [Concomitant]
     Dosage: 300 MG, UNKNOWN
     Route: 065
  10. DIAZEPAM [Concomitant]
     Indication: ANXIETY
     Dosage: 5 MG, 2/D
     Route: 065
     Dates: start: 19930101

REACTIONS (6)
  - DIZZINESS [None]
  - DRUG INTERACTION [None]
  - FALL [None]
  - HYPERHIDROSIS [None]
  - SYNCOPE [None]
  - VISION BLURRED [None]
